FAERS Safety Report 8716386 (Version 2)
Quarter: 2012Q4

REPORT INFORMATION
  Report Type: 
  Country: US (occurrence: US)
  Receive Date: 20120810
  Receipt Date: 20120904
  Transmission Date: 20130627
  Serious: No
  Sender: FDA-Public Use
  Company Number: US-009507513-1207USA012547

PATIENT

DRUGS (4)
  1. VYTORIN [Suspect]
     Dosage: 1 DF, qd
     Route: 048
     Dates: start: 2003
  2. IBUPROFEN [Concomitant]
  3. WARFARIN [Concomitant]
  4. VITAMINS (UNSPECIFIED) [Concomitant]

REACTIONS (6)
  - Erythema [Not Recovered/Not Resolved]
  - Myalgia [Not Recovered/Not Resolved]
  - Fatigue [Not Recovered/Not Resolved]
  - Drug dose omission [Unknown]
  - Inflammation [Not Recovered/Not Resolved]
  - Arthritis [Not Recovered/Not Resolved]
